FAERS Safety Report 4657965-2 (Version None)
Quarter: 2005Q2

REPORT INFORMATION
  Report Type: 
  Country: None (occurrence: None)
  Receive Date: 20050510
  Receipt Date: 20050124
  Transmission Date: 20051028
  Serious: Yes (Hospitalization)
  Sender: FDA-Public Use
  Company Number: 2005UW01393

PATIENT
  Age: 24843 Day
  Sex: Female
  Weight: 50.9 kg

DRUGS (4)
  1. IRESSA [Suspect]
     Indication: LUNG NEOPLASM MALIGNANT
     Route: 048
     Dates: start: 20040920, end: 20041203
  2. LEVOTHYROXINE SODIUM [Concomitant]
     Indication: HYPOTHYROIDISM
     Dates: start: 19760101
  3. ZOLIPIDEM [Concomitant]
     Indication: INSOMNIA
     Dosage: HS
     Dates: start: 20040601
  4. MEGACE [Concomitant]
     Indication: ANOREXIA
     Dates: start: 20040920

REACTIONS (1)
  - LUNG INFILTRATION [None]
